FAERS Safety Report 10082411 (Version 1)
Quarter: 2014Q2

REPORT INFORMATION
  Report Type: Spontaneous
  Country: US (occurrence: None)
  Receive Date: 20140410
  Receipt Date: 20140410
  Transmission Date: 20141212
  Serious: Yes (Other)
  Sender: FDA-Public Use
  Company Number: HA14-040-AE

PATIENT
  Age: 47 Year
  Sex: Female

DRUGS (4)
  1. VENLAFAXINE HCL [Suspect]
     Indication: DEPRESSION
     Route: 048
     Dates: end: 20140212
  2. RANITIDINE HCL [Concomitant]
  3. OXYCODONE [Concomitant]
  4. LORAZEPAM [Concomitant]

REACTIONS (2)
  - Deafness [None]
  - Ototoxicity [None]
